FAERS Safety Report 4547301-4 (Version None)
Quarter: 2005Q1

REPORT INFORMATION
  Report Type: 
  Country: None (occurrence: None)
  Receive Date: 20050105
  Receipt Date: 20041227
  Transmission Date: 20050727
  Serious: Yes (Hospitalization, Disabling, Other)
  Sender: FDA-Public Use
  Company Number: 2004094562

PATIENT
  Sex: Male
  Weight: 86.1834 kg

DRUGS (5)
  1. CELEBREX [Suspect]
     Indication: POST PROCEDURAL PAIN
     Dosage: 200 MG, 1 IN 2 D, ORAL
     Route: 048
     Dates: start: 20010101, end: 20040801
  2. RANITIDINE [Concomitant]
  3. PROPACET 100 [Concomitant]
  4. NORTRIPTYLINE HCL [Concomitant]
  5. CLONAZEPAM [Concomitant]

REACTIONS (6)
  - CARDIAC FAILURE CONGESTIVE [None]
  - CARDIOMYOPATHY [None]
  - CORONARY ARTERY OCCLUSION [None]
  - HEART RATE IRREGULAR [None]
  - INADEQUATE ANALGESIA [None]
  - MYOCARDIAL INFARCTION [None]
